FAERS Safety Report 6039181-5 (Version None)
Quarter: 2009Q1

REPORT INFORMATION
  Report Type: 
  Country: None (occurrence: None)
  Receive Date: 20090115
  Receipt Date: 20081128
  Transmission Date: 20090719
  Serious: Yes (Hospitalization)
  Sender: FDA-Public Use
  Company Number: GB-PFIZER INC-2007005064

PATIENT
  Sex: Female
  Weight: 124 kg

DRUGS (7)
  1. IRINOTECAN HCL [Suspect]
     Indication: COLORECTAL CANCER METASTATIC
     Dosage: 360 MG, EVERY 2 WEEKS
     Route: 042
     Dates: start: 20061005
  2. FLUOROURACIL [Suspect]
     Indication: COLORECTAL CANCER METASTATIC
     Dosage: UNK
     Route: 042
     Dates: start: 20061005
  3. LEUCOVORIN CALCIUM [Suspect]
     Indication: COLORECTAL CANCER METASTATIC
     Dosage: 400 MG, EVERY 2 WEEKS
     Route: 042
     Dates: start: 20061005
  4. SUNITINIB MALATE [Suspect]
     Indication: COLORECTAL CANCER METASTATIC
     Dosage: 37.5 MG, 1X/DAY
     Route: 048
     Dates: start: 20061007
  5. AMLODIPINE [Concomitant]
     Route: 048
     Dates: start: 20061002
  6. DEXAMETHASONE TAB [Concomitant]
     Route: 048
     Dates: start: 20061005
  7. METOCLOPRAMIDE [Concomitant]
     Route: 048
     Dates: start: 20061005

REACTIONS (1)
  - INFECTION [None]
